FAERS Safety Report 15542814 (Version 1)
Quarter: 2018Q4

REPORT INFORMATION
  Report Type: Spontaneous
  Country: US (occurrence: US)
  Receive Date: 20181023
  Receipt Date: 20181023
  Transmission Date: 20190205
  Serious: Yes (Other)
  Sender: FDA-Public Use
  Company Number: US-SAOL THERAPEUTICS-2018SAO01032

PATIENT
  Age: 31 Year
  Sex: Female

DRUGS (1)
  1. RHO D IMMUNE GLOBULIN [Suspect]
     Active Substance: HUMAN RHO(D) IMMUNE GLOBULIN
     Indication: ALLOIMMUNISATION
     Route: 065

REACTIONS (3)
  - Exposure during pregnancy [Not Recovered/Not Resolved]
  - Drug ineffective [Recovered/Resolved]
  - Foetal death [Not Recovered/Not Resolved]
